FAERS Safety Report 6407321-1 (Version None)
Quarter: 2009Q4

REPORT INFORMATION
  Report Type: 
  Country: None (occurrence: None)
  Receive Date: 20091020
  Receipt Date: 20091013
  Transmission Date: 20100525
  Serious: No
  Sender: FDA-Public Use
  Company Number: B0593122A

PATIENT
  Sex: Male
  Weight: 76 kg

DRUGS (2)
  1. LAMBIPOL [Suspect]
     Indication: DEPRESSION
     Dosage: 100MG PER DAY
     Route: 065
     Dates: start: 20090721
  2. PAROXETINE [Concomitant]
     Indication: DEPRESSION
     Route: 048
     Dates: start: 20061003

REACTIONS (2)
  - DERMATITIS PSORIASIFORM [None]
  - SKIN ODOUR ABNORMAL [None]
